FAERS Safety Report 8050610-8 (Version None)
Quarter: 2012Q1

REPORT INFORMATION
  Report Type: 
  Country: None (occurrence: None)
  Receive Date: 20120117
  Receipt Date: 20120117
  Transmission Date: 20120608
  Serious: Yes (Other)
  Sender: FDA-Public Use
  Company Number: None

PATIENT
  Sex: Female

DRUGS (5)
  1. TRAZODONE HCL [Concomitant]
     Route: 048
  2. IMITREX [Concomitant]
  3. CRESTOR [Suspect]
     Indication: BLOOD CHOLESTEROL INCREASED
     Dosage: 1 TABLET
     Route: 048
     Dates: start: 20030831, end: 20120106
  4. KLONOPIN [Concomitant]
     Route: 048
  5. ROPINOL [Concomitant]

REACTIONS (7)
  - INSOMNIA [None]
  - RESTLESS LEGS SYNDROME [None]
  - SOCIAL PROBLEM [None]
  - DYSKINESIA [None]
  - EMOTIONAL DISORDER [None]
  - ECONOMIC PROBLEM [None]
  - ALCOHOL USE [None]
